FAERS Safety Report 17170635 (Version 3)
Quarter: 2022Q1

REPORT INFORMATION
  Report Type: Report from Study
  Country: FR (occurrence: FR)
  Receive Date: 20191218
  Receipt Date: 20220315
  Transmission Date: 20220423
  Serious: Yes (Other)
  Sender: FDA-Public Use
  Company Number: FR-JAZZ-2019-FR-008231

PATIENT
  Sex: Male
  Weight: 75 kg

DRUGS (4)
  1. URSODIOL [Suspect]
     Active Substance: URSODIOL
     Indication: Venoocclusive disease
     Dosage: UNK
  2. DEFITELIO [Suspect]
     Active Substance: DEFIBROTIDE SODIUM
     Indication: Venoocclusive disease
     Dosage: 22.5 MILLIGRAM/KILOGRAM, QD
     Route: 042
     Dates: start: 20180921, end: 20180925
  3. DEFITELIO [Suspect]
     Active Substance: DEFIBROTIDE SODIUM
     Indication: Venoocclusive liver disease
  4. HEPARIN [Suspect]
     Active Substance: HEPARIN SODIUM
     Indication: Prophylaxis
     Dosage: UNK
     Route: 065

REACTIONS (8)
  - Cytomegalovirus infection [Unknown]
  - Pneumonia [Unknown]
  - Influenza [Unknown]
  - Coagulopathy [Unknown]
  - Underdose [Unknown]
  - Off label use [Unknown]
  - Intentional product use issue [Unknown]
  - Acute graft versus host disease [Unknown]

NARRATIVE: CASE EVENT DATE: 20180921
